FAERS Safety Report 19798511 (Version 1)
Quarter: 2021Q3

REPORT INFORMATION
  Report Type: Spontaneous
  Country: TH (occurrence: TH)
  Receive Date: 20210907
  Receipt Date: 20210907
  Transmission Date: 20211014
  Serious: Yes (Other)
  Sender: FDA-Public Use
  Company Number: TH-PFIZER INC-202101098790

PATIENT

DRUGS (1)
  1. XELJANZ [Suspect]
     Active Substance: TOFACITINIB CITRATE
     Indication: COVID-19 TREATMENT
     Dosage: 5 MG, 2X/DAY
     Route: 048

REACTIONS (2)
  - Hepatitis [Unknown]
  - Off label use [Unknown]
